FAERS Safety Report 5642658-5 (Version None)
Quarter: 2008Q1

REPORT INFORMATION
  Report Type: 
  Country: None (occurrence: None)
  Receive Date: 20080228
  Receipt Date: 20080220
  Transmission Date: 20080703
  Serious: Yes (Other)
  Sender: FDA-Public Use
  Company Number: US-JNJFOC-20080205099

PATIENT
  Age: 29 Year
  Sex: Female
  Weight: 51.26 kg

DRUGS (1)
  1. TYLENOL COLD HEAD CONGESTION SEVERE COOL BURST DAYTIME [Suspect]
     Indication: NASOPHARYNGITIS
     Route: 048

REACTIONS (2)
  - THROAT IRRITATION [None]
  - WHEEZING [None]
